FAERS Safety Report 11253333 (Version 1)
Quarter: 2015Q3

REPORT INFORMATION
  Report Type: Spontaneous
  Country: US (occurrence: US)
  Receive Date: 20150709
  Receipt Date: 20150709
  Transmission Date: 20151125
  Serious: No
  Sender: FDA-Public Use
  Company Number: US-TEVA-487312USA

PATIENT
  Sex: Female

DRUGS (1)
  1. LEVOFLOXACIN TABLETS, 250 MG, 500 MG AND 750 MG [Suspect]
     Active Substance: LEVOFLOXACIN
     Indication: SINUSITIS
     Dosage: 500 MILLIGRAM DAILY;
     Dates: start: 20140303

REACTIONS (4)
  - Myalgia [Unknown]
  - Pain [Unknown]
  - Pain in extremity [Unknown]
  - Balance disorder [Unknown]
